FAERS Safety Report 13372845 (Version 1)
Quarter: 2017Q1

REPORT INFORMATION
  Report Type: Spontaneous
  Country: US (occurrence: US)
  Receive Date: 20170327
  Receipt Date: 20170327
  Transmission Date: 20170429
  Serious: No
  Sender: FDA-Public Use
  Company Number: US-TEVA-660072USA

PATIENT
  Sex: Female

DRUGS (2)
  1. CABERGOLINE. [Suspect]
     Active Substance: CABERGOLINE
     Dates: start: 201603, end: 201604
  2. CABERGOLINE. [Suspect]
     Active Substance: CABERGOLINE
     Indication: PITUITARY TUMOUR BENIGN
     Dates: start: 201511, end: 201601

REACTIONS (10)
  - Condition aggravated [Recovered/Resolved]
  - Product substitution issue [Unknown]
  - Blood prolactin increased [Not Recovered/Not Resolved]
  - Bone loss [Unknown]
  - Hot flush [Recovered/Resolved]
  - Insomnia [Unknown]
  - Drug ineffective [Unknown]
  - Headache [Recovered/Resolved]
  - Blood oestrogen decreased [Unknown]
  - Irritability [Unknown]

NARRATIVE: CASE EVENT DATE: 201511
